FAERS Safety Report 5889640-0 (Version None)
Quarter: 2008Q3

REPORT INFORMATION
  Report Type: 
  Country: None (occurrence: None)
  Receive Date: 20080919
  Receipt Date: 20080912
  Transmission Date: 20090109
  Serious: Yes (Other)
  Sender: FDA-Public Use
  Company Number: B0537887A

PATIENT
  Age: 73 Year
  Sex: Male

DRUGS (3)
  1. ADARTREL [Suspect]
     Indication: PARKINSON'S DISEASE
     Dosage: 2MG PER DAY
     Route: 048
  2. STALEVO 100 [Concomitant]
     Indication: PARKINSON'S DISEASE
     Route: 065
  3. SELEGILIN [Concomitant]
     Indication: PARKINSON'S DISEASE
     Route: 065

REACTIONS (2)
  - MEDICATION ERROR [None]
  - PSYCHOTIC DISORDER [None]
